FAERS Safety Report 20475879 (Version 1)
Quarter: 2022Q1

REPORT INFORMATION
  Report Type: Report from Study
  Country: DE (occurrence: DE)
  Receive Date: 20220215
  Receipt Date: 20220215
  Transmission Date: 20220423
  Serious: Yes (Other)
  Sender: FDA-Public Use
  Company Number: DE-TAKEDA-2022TUS008314

PATIENT
  Age: 70 Year
  Sex: Male
  Weight: 82 kg

DRUGS (18)
  1. ANTIHEMOPHILIC FACTOR, PEGYLATED (MW 20000) HUMAN SEQUENCE RECOMBINANT [Suspect]
     Active Substance: ANTIHEMOPHILIC FACTOR, PEGYLATED (MW 20000) HUMAN SEQUENCE RECOMBINANT
     Indication: Factor VIII deficiency
     Dosage: 2000 INTERNATIONAL UNIT, QOD
     Route: 065
     Dates: start: 20190826, end: 20200323
  2. ANTIHEMOPHILIC FACTOR, PEGYLATED (MW 20000) HUMAN SEQUENCE RECOMBINANT [Suspect]
     Active Substance: ANTIHEMOPHILIC FACTOR, PEGYLATED (MW 20000) HUMAN SEQUENCE RECOMBINANT
     Indication: Factor VIII deficiency
     Dosage: 2000 INTERNATIONAL UNIT, QOD
     Route: 065
     Dates: start: 20190826, end: 20200323
  3. ANTIHEMOPHILIC FACTOR, PEGYLATED (MW 20000) HUMAN SEQUENCE RECOMBINANT [Suspect]
     Active Substance: ANTIHEMOPHILIC FACTOR, PEGYLATED (MW 20000) HUMAN SEQUENCE RECOMBINANT
     Indication: Factor VIII deficiency
     Dosage: 2000 INTERNATIONAL UNIT, QOD
     Route: 065
     Dates: start: 20190826, end: 20200323
  4. AVELOX [Concomitant]
     Active Substance: MOXIFLOXACIN HYDROCHLORIDE
     Indication: Pneumonia
     Dosage: 400 MILLIGRAM
     Route: 048
     Dates: start: 20141224
  5. SULFUR HEXAFLUORIDE [Concomitant]
     Active Substance: SULFUR HEXAFLUORIDE
     Indication: Keratoplasty
     Dosage: UNK UNK, QD
     Route: 031
     Dates: start: 20171130, end: 20171130
  6. OFLOXACIN [Concomitant]
     Active Substance: OFLOXACIN
     Indication: Keratoplasty
     Dosage: 1 DOSAGE FORM
     Route: 031
     Dates: start: 20171130, end: 20191209
  7. AMLODIPINE [Concomitant]
     Active Substance: AMLODIPINE BESYLATE
     Indication: Hypertension
     Dosage: 5 MILLIGRAM, QD
     Route: 048
     Dates: start: 20160616
  8. ARCOXIA [Concomitant]
     Active Substance: ETORICOXIB
     Indication: Arthropathy
     Dosage: 60 MILLIGRAM
     Route: 048
  9. PROLIA [Concomitant]
     Active Substance: DENOSUMAB
     Indication: Osteoporosis
     Dosage: 60 MILLIGRAM, Q6MONTHS
     Route: 058
  10. CORTISONE ACETATE [Concomitant]
     Active Substance: CORTISONE ACETATE
     Indication: Eye disorder
     Dosage: 1 DOSAGE FORM
     Route: 031
     Dates: start: 20180201
  11. DESCOVY [Concomitant]
     Active Substance: EMTRICITABINE\TENOFOVIR ALAFENAMIDE FUMARATE
     Indication: HIV infection
     Dosage: 25 MILLIGRAM, QD
     Route: 048
     Dates: end: 201810
  12. IBUPROFEN [Concomitant]
     Active Substance: IBUPROFEN
     Indication: Arthropathy
     Dosage: 600 MILLIGRAM
     Route: 048
     Dates: start: 20110726, end: 20110728
  13. IBUPROFEN [Concomitant]
     Active Substance: IBUPROFEN
     Dosage: 400 MILLIGRAM
     Route: 048
  14. TRUVADA [Concomitant]
     Active Substance: EMTRICITABINE\TENOFOVIR DISOPROXIL FUMARATE
     Indication: HIV infection
     Dosage: UNK
     Route: 048
     Dates: start: 201810
  15. BIKTARVY [Concomitant]
     Active Substance: BICTEGRAVIR SODIUM\EMTRICITABINE\TENOFOVIR ALAFENAMIDE FUMARATE
     Indication: HIV infection
     Dosage: UNK
  16. SILODOSIN [Concomitant]
     Active Substance: SILODOSIN
     Indication: Benign prostatic hyperplasia
     Dosage: 8 MILLIGRAM
     Route: 048
     Dates: start: 20191121
  17. BONVIVA [Concomitant]
     Active Substance: IBANDRONATE SODIUM
     Indication: Osteoporosis
     Dosage: UNK
     Route: 058
     Dates: start: 20110607
  18. Covid-19 vaccine [Concomitant]
     Dosage: 1 DOSAGE FORM, QD
     Route: 030
     Dates: start: 20210610, end: 20210610

REACTIONS (1)
  - Skin laceration [Recovered/Resolved]

NARRATIVE: CASE EVENT DATE: 20200324
